FAERS Safety Report 13047842 (Version 1)
Quarter: 2016Q4

REPORT INFORMATION
  Report Type: Spontaneous
  Country: GB (occurrence: GB)
  Receive Date: 20161220
  Receipt Date: 20161220
  Transmission Date: 20170207
  Serious: Yes (Other)
  Sender: FDA-Public Use
  Company Number: PHHY2016GB170711

PATIENT
  Sex: Male

DRUGS (2)
  1. BISOPROLOL FUMARATE. [Suspect]
     Active Substance: BISOPROLOL FUMARATE
     Dosage: 2.5MG IN THE MORNING AND 1.25MG IN THE EVENING. PATIENT INCREASED DOSE WITHOUT CONSULTING DOCTOR
     Route: 065
  2. BISOPROLOL FUMARATE. [Suspect]
     Active Substance: BISOPROLOL FUMARATE
     Indication: PRODUCT USED FOR UNKNOWN INDICATION
     Dosage: 2.5 MG, QD (2.5MG IN THE MORNING. DOSE PRESCRIBED BY DOCTOR)
     Route: 065

REACTIONS (1)
  - Cardiac flutter [Unknown]
